FAERS Safety Report 10248215 (Version 1)
Quarter: 2014Q2

REPORT INFORMATION
  Report Type: Spontaneous
  Country: US (occurrence: US)
  Receive Date: 20140620
  Receipt Date: 20140620
  Transmission Date: 20141212
  Serious: Yes (Other)
  Sender: FDA-Public Use
  Company Number: US-AMGEN INC.-USASP2014045743

PATIENT
  Age: 45 Year
  Sex: Male
  Weight: 70.3 kg

DRUGS (2)
  1. ENBREL [Suspect]
     Indication: PRODUCT USED FOR UNKNOWN INDICATION
     Dosage: 50 MG, QWK
     Route: 058
     Dates: start: 2013
  2. PANTOPRAZOLE [Concomitant]
     Dosage: 20 MG, UNK

REACTIONS (1)
  - Back pain [Not Recovered/Not Resolved]
